FAERS Safety Report 8544520-7 (Version None)
Quarter: 2012Q3

REPORT INFORMATION
  Report Type: 
  Country: None (occurrence: None)
  Receive Date: 20120727
  Receipt Date: 20120723
  Transmission Date: 20120928
  Serious: Yes (Death, Life-Threatening, Hospitalization, Other)
  Sender: FDA-Public Use
  Company Number: FR-ASTRAZENECA-2012SE51754

PATIENT
  Age: 3893 Week
  Sex: Male

DRUGS (1)
  1. SEROQUEL [Suspect]
     Route: 048
     Dates: start: 20120627, end: 20120703

REACTIONS (4)
  - LUNG DISORDER [None]
  - DEATH [None]
  - FALL [None]
  - NEUROLEPTIC MALIGNANT SYNDROME [None]
